FAERS Safety Report 25733814 (Version 1)
Quarter: 2025Q3

REPORT INFORMATION
  Report Type: Spontaneous
  Country: US (occurrence: US)
  Receive Date: 20250828
  Receipt Date: 20250828
  Transmission Date: 20251020
  Serious: Yes (Other)
  Sender: SHILPA MEDICARE
  Company Number: US-KOANAAP-SML-US-2025-00405

PATIENT
  Age: 14 Year
  Sex: Male

DRUGS (5)
  1. IRINOTECAN [Suspect]
     Active Substance: IRINOTECAN
     Indication: Neuroblastoma
  2. LORLATINIB [Suspect]
     Active Substance: LORLATINIB
     Indication: Neuroblastoma
  3. LORLATINIB [Suspect]
     Active Substance: LORLATINIB
  4. NAXITAMAB [Suspect]
     Active Substance: NAXITAMAB
     Indication: Neuroblastoma
  5. TEMOZOLOMIDE [Suspect]
     Active Substance: TEMOZOLOMIDE
     Indication: Neuroblastoma

REACTIONS (11)
  - Pulmonary toxicity [Recovered/Resolved]
  - Rhinorrhoea [Recovered/Resolved]
  - Wheezing [Recovered/Resolved]
  - Hypoxia [Recovered/Resolved]
  - Pneumonitis [Recovered/Resolved]
  - Respiratory distress [Recovered/Resolved]
  - Altered state of consciousness [Recovered/Resolved]
  - Pulmonary alveolar haemorrhage [Recovered/Resolved]
  - Cough [Recovered/Resolved]
  - Cough [Recovered/Resolved]
  - Pyrexia [Recovered/Resolved]
